FAERS Safety Report 14106642 (Version 2)
Quarter: 2017Q4

REPORT INFORMATION
  Report Type: Spontaneous
  Country: TN (occurrence: TN)
  Receive Date: 20171018
  Receipt Date: 20171026
  Transmission Date: 20180321
  Serious: Yes (Hospitalization)
  Sender: FDA-Public Use
  Company Number: TN-B.I. PHARMACEUTICALS,INC./RIDGEFIELD-2017-BI-053984

PATIENT
  Age: 42 Year
  Sex: Female

DRUGS (8)
  1. MICARDIS [Suspect]
     Active Substance: TELMISARTAN
     Route: 048
     Dates: start: 201602, end: 201609
  2. PLAQUENIL [Concomitant]
     Active Substance: HYDROXYCHLOROQUINE SULFATE
     Indication: PRODUCT USED FOR UNKNOWN INDICATION
     Route: 065
     Dates: start: 201611
  3. DIAMICRON [Concomitant]
     Active Substance: GLICLAZIDE
     Indication: PRODUCT USED FOR UNKNOWN INDICATION
     Route: 065
  4. GLUCOPHAGE [Concomitant]
     Active Substance: METFORMIN HYDROCHLORIDE
     Indication: DIABETES MELLITUS
     Route: 048
     Dates: start: 201202, end: 201511
  5. SOLUPRED [Concomitant]
     Active Substance: PREDNISOLONE
     Indication: SARCOIDOSIS
     Route: 048
     Dates: start: 201202
  6. LAWRAC [Concomitant]
     Indication: HYPERTENSION
     Route: 048
     Dates: start: 201511, end: 201512
  7. MICARDIS [Suspect]
     Active Substance: TELMISARTAN
     Indication: HYPERTENSION
     Route: 048
     Dates: start: 201511, end: 201512
  8. PHYSIOTENS [Concomitant]
     Active Substance: MOXONIDINE
     Indication: PRODUCT USED FOR UNKNOWN INDICATION
     Route: 065
     Dates: start: 201611

REACTIONS (3)
  - Cell death [Not Recovered/Not Resolved]
  - Cell death [Recovered/Resolved]
  - Cholestasis [Unknown]

NARRATIVE: CASE EVENT DATE: 201511
